FAERS Safety Report 19503918 (Version 1)
Quarter: 2021Q3

REPORT INFORMATION
  Report Type: Spontaneous
  Country: US (occurrence: US)
  Receive Date: 20210707
  Receipt Date: 20210707
  Transmission Date: 20211014
  Serious: No
  Sender: FDA-Public Use
  Company Number: US-SUNOVION-2021SUN002490

PATIENT
  Age: 67 Year
  Sex: Female

DRUGS (2)
  1. FURAMIST [Suspect]
     Active Substance: FLUTICASONE FUROATE
     Dosage: UNK
  2. BROVANA [Suspect]
     Active Substance: ARFORMOTEROL TARTRATE
     Dosage: 15 ?G 2ML, BID
     Route: 055

REACTIONS (2)
  - Cough [Unknown]
  - Therapy cessation [Unknown]
